FAERS Safety Report 11327948 (Version 2)
Quarter: 2015Q3

REPORT INFORMATION
  Report Type: Spontaneous
  Country: US (occurrence: US)
  Receive Date: 20150731
  Receipt Date: 20150805
  Transmission Date: 20151125
  Serious: No
  Sender: FDA-Public Use
  Company Number: US-PFIZER INC-2015253105

PATIENT
  Age: 31 Year
  Sex: Female

DRUGS (2)
  1. CABERGOLINE. [Suspect]
     Active Substance: CABERGOLINE
     Indication: BLOOD PROLACTIN INCREASED
     Dosage: MAY HAVE BEEN 0.25 OR 0.5
     Dates: start: 201406, end: 201407
  2. CABERGOLINE. [Suspect]
     Active Substance: CABERGOLINE
     Indication: INFERTILITY FEMALE

REACTIONS (5)
  - Malaise [Recovering/Resolving]
  - Amnesia [Recovering/Resolving]
  - Personality change [Recovering/Resolving]
  - Blood prolactin increased [Not Recovered/Not Resolved]
  - Weight loss poor [Not Recovered/Not Resolved]
